FAERS Safety Report 8459080-9 (Version None)
Quarter: 2012Q2

REPORT INFORMATION
  Report Type: 
  Country: None (occurrence: None)
  Receive Date: 20120622
  Receipt Date: 20120615
  Transmission Date: 20120825
  Serious: Yes (Hospitalization)
  Sender: FDA-Public Use
  Company Number: US-CELGENEUS-163-21880-11121275

PATIENT
  Weight: 107.7 kg

DRUGS (19)
  1. DEXAMETHASONE [Suspect]
     Indication: MULTIPLE MYELOMA
     Dosage: 40 MILLIGRAM
     Route: 065
     Dates: start: 20110525
  2. CARFILZOMIB [Suspect]
     Indication: MULTIPLE MYELOMA
     Dosage: 44 MILLIGRAM
     Route: 065
     Dates: start: 20110525
  3. PANTOPRAZOLE [Concomitant]
     Dosage: 40 MILLIGRAM
     Route: 048
     Dates: start: 20100209
  4. REVLIMID [Suspect]
     Indication: MULTIPLE MYELOMA
     Dosage: 25 MILLIGRAM
     Route: 048
     Dates: start: 20110525
  5. ASPIRIN [Concomitant]
     Indication: ANTIPLATELET THERAPY
     Route: 048
  6. NASONEX [Concomitant]
     Dosage: 502 MICROGRAM
     Route: 045
     Dates: start: 20110428
  7. ALLOPURINOL [Concomitant]
     Indication: PROPHYLAXIS
     Dosage: 300 MILLIGRAM
     Route: 048
     Dates: start: 20110523
  8. ASPIRIN [Concomitant]
     Indication: ANTICOAGULANT THERAPY
     Dosage: 325 MILLIGRAM
     Route: 048
     Dates: start: 20110525
  9. MAGNESIUM OXIDE [Concomitant]
     Indication: CONSTIPATION PROPHYLAXIS
     Dosage: 400 MILLIGRAM
     Route: 048
     Dates: start: 20100423
  10. DEXAMETHASONE [Suspect]
     Dosage: 20 MILLIGRAM
     Route: 065
     Dates: start: 20111012, end: 20120201
  11. CARFILZOMIB [Suspect]
     Dosage: 60 MILLIGRAM
     Route: 065
     Dates: start: 20110601
  12. ACYCLOVIR [Concomitant]
     Indication: ANTIVIRAL PROPHYLAXIS
     Dosage: 400 MILLIGRAM
     Route: 048
     Dates: start: 20100518
  13. CENTRUM [Concomitant]
     Indication: SUPPLEMENTATION THERAPY
     Dosage: 1 TABLET
     Route: 048
     Dates: start: 20100813
  14. FLUIDS [Concomitant]
     Route: 041
     Dates: start: 20111101
  15. CARFILZOMIB [Suspect]
     Dosage: 44 MILLIGRAM
     Route: 065
     Dates: start: 20111214, end: 20120126
  16. TRIAMCINOLONE [Concomitant]
     Indication: RASH
     Dosage: .1 PERCENT
     Route: 061
     Dates: start: 20110601
  17. REVLIMID [Suspect]
     Dosage: 15 MILLIGRAM
     Route: 048
     Dates: start: 20111214, end: 20120131
  18. BACTRIM [Concomitant]
     Indication: ANTIBIOTIC PROPHYLAXIS
     Dosage: 80 - 400 MG
     Route: 048
     Dates: start: 20110428
  19. CALTRATE 600 D PLUS MINERALS [Concomitant]
     Indication: BONE DISORDER
     Dosage: 1 TABLET
     Route: 048
     Dates: start: 20100209

REACTIONS (1)
  - NEUTROPENIC COLITIS [None]
